FAERS Safety Report 4430101-3 (Version None)
Quarter: 2004Q3

REPORT INFORMATION
  Report Type: 
  Country: None (occurrence: None)
  Receive Date: 20040820
  Receipt Date: 20040722
  Transmission Date: 20050211
  Serious: Yes (Hospitalization)
  Sender: FDA-Public Use
  Company Number: AU-ROCHE-375172

PATIENT
  Age: 63 Year
  Sex: Female
  Weight: 72 kg

DRUGS (2)
  1. CAPECITABINE [Suspect]
     Dosage: ACTUAL DOSE 800 MG.  FIRST DOSE OF THE EVENING OF DAY 1 AND THE LAST OF THE MORNING OF DAY 15, GIVE+
     Route: 048
     Dates: start: 20040517, end: 20040805
  2. OXALIPLATIN [Suspect]
     Route: 042
     Dates: start: 20040517, end: 20040805

REACTIONS (2)
  - NO ADVERSE DRUG EFFECT [None]
  - SMALL INTESTINAL OBSTRUCTION [None]
